FAERS Safety Report 10108571 (Version 1)
Quarter: 2014Q2

REPORT INFORMATION
  Report Type: Spontaneous
  Country: US (occurrence: US)
  Receive Date: 20140425
  Receipt Date: 20140425
  Transmission Date: 20141212
  Serious: No
  Sender: FDA-Public Use
  Company Number: US-009507513-1404USA005184

PATIENT
  Sex: Male

DRUGS (6)
  1. PEGINTRON [Suspect]
     Indication: HEPATITIS C
     Dosage: 0.5 ML, QW
     Route: 058
     Dates: start: 20140307
  2. REBETOL [Suspect]
     Indication: HEPATITIS C
     Dosage: 600 MG, BID
     Route: 048
     Dates: start: 20140308
  3. ALPRAZOLAM [Concomitant]
     Dosage: 0.5 TABLET, QOD
  4. SOVALDI [Concomitant]
     Dosage: 1 DAILY
  5. BUPRENORPHINE [Concomitant]
     Dosage: 2 TO 3 TIMES A DAY
  6. IBUPROFEN [Concomitant]
     Dosage: 3 TABLETS AS NEEDED

REACTIONS (5)
  - Constipation [Unknown]
  - Back pain [Unknown]
  - Abdominal pain [Unknown]
  - Insomnia [Unknown]
  - Headache [Recovered/Resolved]
